FAERS Safety Report 16641201 (Version 1)
Quarter: 2019Q3

REPORT INFORMATION
  Report Type: Spontaneous
  Country: ES (occurrence: ES)
  Receive Date: 20190729
  Receipt Date: 20190729
  Transmission Date: 20191004
  Serious: Yes (Hospitalization)
  Sender: FDA-Public Use
  Company Number: ES-ROCHE-2363565

PATIENT
  Age: 52 Year
  Sex: Male

DRUGS (6)
  1. HEIPRAM [Concomitant]
     Active Substance: ESCITALOPRAM OXALATE
     Dosage: 1-0-0
     Route: 065
  2. MYSOLINE [Concomitant]
     Active Substance: PRIMIDONE
     Route: 065
  3. OCRELIZUMAB. [Suspect]
     Active Substance: OCRELIZUMAB
     Indication: PRIMARY PROGRESSIVE MULTIPLE SCLEROSIS
     Route: 042
     Dates: start: 20180815
  4. SUMIAL [Concomitant]
     Active Substance: PROPRANOLOL HYDROCHLORIDE
     Dosage: SUMIAL 40 MG 1/2-1/2-1/2
     Route: 065
  5. FAMPRIDINA [Concomitant]
     Active Substance: DALFAMPRIDINE
     Dosage: FAMPRIDINA 10 MG 1-0-1
     Route: 065
  6. GABAPENTINA [Concomitant]
     Active Substance: GABAPENTIN
     Dosage: 1-0-1
     Route: 065

REACTIONS (1)
  - Febrile neutropenia [Recovered/Resolved]

NARRATIVE: CASE EVENT DATE: 20190621
